FAERS Safety Report 22294488 (Version 1)
Quarter: 2023Q2

REPORT INFORMATION
  Report Type: Spontaneous
  Country: US (occurrence: None)
  Receive Date: 20230505
  Receipt Date: 20230505
  Transmission Date: 20230722
  Serious: No
  Sender: FDA-Public Use
  Company Number: None

PATIENT
  Age: 85 Year
  Sex: Male
  Weight: 85.73 kg

DRUGS (13)
  1. EVEROLIMUS [Suspect]
     Active Substance: EVEROLIMUS
     Indication: Renal cancer
     Dosage: FREQUENCY : DAILY;?
     Route: 048
     Dates: start: 202303
  2. ALBUTEROL [Concomitant]
     Active Substance: ALBUTEROL
  3. ALLOPURINOL [Concomitant]
     Active Substance: ALLOPURINOL
  4. BENZONATATE [Concomitant]
     Active Substance: BENZONATATE
  5. BUDESONIDE\FORMOTEROL [Concomitant]
     Active Substance: BUDESONIDE\FORMOTEROL
  6. CYANOCOBALAMIN [Concomitant]
     Active Substance: CYANOCOBALAMIN
  7. GEMFIBROZIL [Concomitant]
     Active Substance: GEMFIBROZIL
  8. LINZESS [Concomitant]
     Active Substance: LINACLOTIDE
  9. LOPRESSOR [Concomitant]
     Active Substance: METOPROLOL TARTRATE
  10. LOSARTAN [Concomitant]
     Active Substance: LOSARTAN
  11. PLAQUENIL [Concomitant]
     Active Substance: HYDROXYCHLOROQUINE SULFATE
  12. SINGULAIR [Concomitant]
     Active Substance: MONTELUKAST SODIUM
  13. VITAMINB6 [Concomitant]

REACTIONS (1)
  - Hospice care [None]
